FAERS Safety Report 17671052 (Version 1)
Quarter: 2020Q2

REPORT INFORMATION
  Report Type: Report from Study
  Country: US (occurrence: US)
  Receive Date: 20200415
  Receipt Date: 20200415
  Transmission Date: 20200713
  Serious: Yes (Hospitalization, Other)
  Sender: FDA-Public Use
  Company Number: US-ASTRAZENECA-2020SE43860

PATIENT
  Age: 140 Day
  Sex: Female
  Weight: 5.7 kg

DRUGS (3)
  1. SYNAGIS [Suspect]
     Active Substance: PALIVIZUMAB
     Indication: PREMATURE BABY
     Dosage: 0.8 ML
     Route: 030
     Dates: start: 20191229
  2. SYNAGIS [Suspect]
     Active Substance: PALIVIZUMAB
     Indication: PREMATURE BABY
     Route: 030
     Dates: start: 20200219
  3. OXYGEN ON HENO [Concomitant]
     Indication: HYPOXIA
     Dosage: WEANING
     Dates: start: 20200302, end: 20200307

REACTIONS (2)
  - Bronchiolitis [Recovered/Resolved]
  - Viral infection [Unknown]

NARRATIVE: CASE EVENT DATE: 20200302
